FAERS Safety Report 6178738-8 (Version None)
Quarter: 2009Q2

REPORT INFORMATION
  Report Type: 
  Country: None (occurrence: None)
  Receive Date: 20090430
  Receipt Date: 20090420
  Transmission Date: 20091009
  Serious: Yes (Other)
  Sender: FDA-Public Use
  Company Number: CERZ-1000614

PATIENT
  Age: 71 Year
  Sex: Male
  Weight: 82 kg

DRUGS (1)
  1. CEREZYME [Suspect]
     Indication: GAUCHER'S DISEASE
     Dosage: 2400 U, Q3W, INTRAVENOUS
     Route: 042
     Dates: start: 19980626

REACTIONS (1)
  - CHRONIC LYMPHOCYTIC LEUKAEMIA [None]
